FAERS Safety Report 4566457-0 (Version None)
Quarter: 2005Q1

REPORT INFORMATION
  Report Type: 
  Country: None (occurrence: None)
  Receive Date: 20050201
  Receipt Date: 20050121
  Transmission Date: 20050727
  Serious: Yes (Hospitalization)
  Sender: FDA-Public Use
  Company Number: JP-BRISTOL-MYERS SQUIBB COMPANY-12833877

PATIENT
  Age: 54 Year
  Sex: Female
  Weight: 54 kg

DRUGS (7)
  1. ETOPOSIDE [Suspect]
     Indication: OVARIAN NEOPLASM
     Route: 033
  2. CISPLATIN [Suspect]
     Indication: OVARIAN NEOPLASM
     Route: 033
  3. DIAZEPAM [Concomitant]
     Indication: PREMEDICATION
  4. RANITIDINE [Concomitant]
     Indication: PREMEDICATION
  5. LIDOCAINE AND EPINEPHRINE [Concomitant]
  6. THIOPENTAL SODIUM [Concomitant]
     Indication: ANAESTHESIA
     Route: 042
  7. VECURONIUM [Concomitant]
     Indication: INTUBATION
     Route: 042

REACTIONS (2)
  - ARTERIOSPASM CORONARY [None]
  - BLOOD PRESSURE SYSTOLIC DECREASED [None]
